FAERS Safety Report 6731090-9 (Version None)
Quarter: 2010Q2

REPORT INFORMATION
  Report Type: 
  Country: None (occurrence: None)
  Receive Date: 20100518
  Receipt Date: 20100512
  Transmission Date: 20101027
  Serious: Yes (Other)
  Sender: FDA-Public Use
  Company Number: CHPA2010GB04637

PATIENT
  Sex: Female

DRUGS (7)
  1. NICOTINELL GUM (NCH) [Suspect]
     Indication: SOMNOLENCE
     Dosage: UNK, UNK
     Route: 002
     Dates: start: 20090101, end: 20090101
  2. NICOTINELL GUM (NCH) [Suspect]
     Dosage: 2 DF, ONCE/SINGLE
     Route: 002
     Dates: start: 20100301, end: 20100301
  3. NICOTINE (NCH) [Suspect]
     Dosage: UNK, UNK
     Route: 062
  4. ^CHINESE MEDICINE^ [Concomitant]
     Dosage: 3 SPOONFULS, QD
     Route: 048
  5. VITAMIN C [Concomitant]
     Dosage: UNK, QD
     Route: 048
  6. FISH OIL [Concomitant]
     Dosage: UNK, QD
     Route: 048
  7. MULTI-VITAMINS [Concomitant]
     Dosage: UNK, QD

REACTIONS (15)
  - ABDOMINAL DISCOMFORT [None]
  - ABDOMINAL PAIN UPPER [None]
  - HEADACHE [None]
  - HYPERSENSITIVITY [None]
  - MALAISE [None]
  - MOBILITY DECREASED [None]
  - NAUSEA [None]
  - OFF LABEL USE [None]
  - OVERDOSE [None]
  - PALPITATIONS [None]
  - PRURITUS [None]
  - SYNCOPE [None]
  - TREATMENT NONCOMPLIANCE [None]
  - VERTIGO [None]
  - VOMITING [None]
